FAERS Safety Report 5934573-4 (Version None)
Quarter: 2008Q4

REPORT INFORMATION
  Report Type: 
  Country: None (occurrence: None)
  Receive Date: 20081027
  Receipt Date: 20080930
  Transmission Date: 20090506
  Serious: Yes (Other)
  Sender: FDA-Public Use
  Company Number: CHPA2008US17863

PATIENT
  Age: 65 Year
  Sex: Female

DRUGS (4)
  1. VOLTAREN [Suspect]
     Indication: PAIN IN EXTREMITY
     Dosage: TOPICAL
     Route: 061
     Dates: start: 20080924, end: 20080924
  2. ATIVAN [Concomitant]
  3. PHENOBARBITAL TAB [Concomitant]
  4. LAMICTAL [Concomitant]

REACTIONS (1)
  - CONVULSION [None]
